FAERS Safety Report 12807954 (Version 1)
Quarter: 2016Q4

REPORT INFORMATION
  Report Type: Spontaneous
  Country: BR (occurrence: BR)
  Receive Date: 20161004
  Receipt Date: 20161004
  Transmission Date: 20170207
  Serious: Yes (Other)
  Sender: FDA-Public Use
  Company Number: BR-TEVA-695997ROM

PATIENT
  Age: 40 Year
  Sex: Male
  Weight: 106 kg

DRUGS (7)
  1. DEPURA [Concomitant]
     Active Substance: CHOLECALCIFEROL
     Dosage: 3000 IU (INTERNATIONAL UNIT) DAILY;
  2. RIVOTRIL [Concomitant]
     Active Substance: CLONAZEPAM
     Dosage: 10 DOSAGE FORMS DAILY;
  3. TEVAIRINOT [Suspect]
     Active Substance: IRINOTECAN HYDROCHLORIDE
     Indication: RECTAL CANCER
     Route: 042
     Dates: start: 20160720
  4. FAULDFLUOR [Suspect]
     Active Substance: FLUOROURACIL
     Indication: RECTAL CANCER
     Dates: start: 20160720
  5. IMOSEC [Concomitant]
     Active Substance: LOPERAMIDE
  6. FALDLEUCO [Suspect]
     Active Substance: LEUCOVORIN CALCIUM
     Indication: RECTAL CANCER
     Dates: start: 20160720
  7. ERBITUX [Suspect]
     Active Substance: CETUXIMAB
     Dates: start: 20160720

REACTIONS (1)
  - Hypertension [Unknown]

NARRATIVE: CASE EVENT DATE: 20160914
